FAERS Safety Report 5931070-7 (Version None)
Quarter: 2008Q4

REPORT INFORMATION
  Report Type: 
  Country: None (occurrence: None)
  Receive Date: 20081027
  Receipt Date: 20081015
  Transmission Date: 20090506
  Serious: Yes (Other)
  Sender: FDA-Public Use
  Company Number: BE-ROCHE-592633

PATIENT
  Age: 56 Year
  Sex: Female

DRUGS (4)
  1. BONIVA [Suspect]
     Indication: OSTEOPOROSIS POSTMENOPAUSAL
     Route: 065
     Dates: start: 20080701, end: 20080701
  2. IMURAN [Suspect]
     Indication: AUTOIMMUNE HEPATITIS
     Route: 065
  3. MEDROL [Concomitant]
     Indication: AUTOIMMUNE HEPATITIS
  4. URSO FALK [Concomitant]
     Indication: AUTOIMMUNE HEPATITIS

REACTIONS (2)
  - PALPITATIONS [None]
  - PANCREATIC NEOPLASM [None]
